FAERS Safety Report 13498850 (Version 2)
Quarter: 2017Q2

REPORT INFORMATION
  Report Type: Spontaneous
  Country: US (occurrence: US)
  Receive Date: 20170501
  Receipt Date: 20170503
  Transmission Date: 20170830
  Serious: Yes (Other)
  Sender: FDA-Public Use
  Company Number: PHEH2017US011910

PATIENT
  Age: 28 Year
  Sex: Male

DRUGS (1)
  1. TRILEPTAL [Suspect]
     Active Substance: OXCARBAZEPINE
     Indication: BIPOLAR I DISORDER
     Dosage: UNK
     Route: 065

REACTIONS (7)
  - Anxiety [Unknown]
  - Confusional state [Unknown]
  - Loss of consciousness [Unknown]
  - Generalised tonic-clonic seizure [Unknown]
  - Product use in unapproved indication [Unknown]
  - Fear [Unknown]
  - Seizure [Recovered/Resolved]
